FAERS Safety Report 16272514 (Version 1)
Quarter: 2019Q2

REPORT INFORMATION
  Report Type: Spontaneous
  Country: GB (occurrence: GB)
  Receive Date: 20190503
  Receipt Date: 20190503
  Transmission Date: 20190711
  Serious: Yes (Hospitalization)
  Sender: FDA-Public Use
  Company Number: GB-TEVA-2019-GB-1044442

PATIENT
  Age: 83 Year
  Sex: Male

DRUGS (14)
  1. COCODAMOL [Concomitant]
     Active Substance: ACETAMINOPHEN\CODEINE PHOSPHATE
     Dosage: 15MG/500MG
  2. OMEPRAZOLE. [Concomitant]
     Active Substance: OMEPRAZOLE
     Dosage: 20 MILLIGRAM DAILY;
     Route: 048
  3. RAMIPRIL. [Concomitant]
     Active Substance: RAMIPRIL
     Dosage: 5 MILLIGRAM DAILY;
     Route: 048
  4. CASSIA (SENNA ALEXANDRINA) [Concomitant]
     Active Substance: HERBALS\SENNOSIDES
     Dosage: 15 MILLIGRAM DAILY; AT NIGHT
     Route: 048
  5. ALLOPURINOL. [Concomitant]
     Active Substance: ALLOPURINOL
     Dosage: 100 MILLIGRAM DAILY;
  6. TRIMETHOPRIM. [Suspect]
     Active Substance: TRIMETHOPRIM
     Dosage: 400 MILLIGRAM DAILY;
     Route: 048
     Dates: start: 20190122, end: 20190128
  7. ALFACALCIDOL [Concomitant]
     Active Substance: ALFACALCIDOL
     Dosage: 500 MILLIGRAM DAILY;
     Route: 048
  8. BUMETANIDE. [Concomitant]
     Active Substance: BUMETANIDE
     Dosage: 3 MILLIGRAM DAILY; 2MG IN THE MORNING, 1MG LUNCH
     Route: 048
  9. BISOPROLOL [Concomitant]
     Active Substance: BISOPROLOL
     Dosage: 1.25 MILLIGRAM DAILY;
     Route: 048
  10. SILDENAFIL. [Concomitant]
     Active Substance: SILDENAFIL
     Route: 048
  11. WARFARIN [Suspect]
     Active Substance: WARFARIN
     Route: 048
  12. AMLODIPINE [Concomitant]
     Active Substance: AMLODIPINE BESYLATE
     Dosage: 10 MILLIGRAM DAILY;
     Route: 048
  13. FOLIC ACID. [Concomitant]
     Active Substance: FOLIC ACID
     Dosage: 5 MILLIGRAM DAILY;
  14. ATORVASTATIN [Concomitant]
     Active Substance: ATORVASTATIN
     Dosage: 20 MILLIGRAM DAILY;
     Route: 048

REACTIONS (8)
  - International normalised ratio increased [Unknown]
  - Electrocardiogram abnormal [Recovered/Resolved]
  - Dyspnoea [Unknown]
  - Blood creatinine increased [Unknown]
  - Hyperkalaemia [Recovering/Resolving]
  - Rectal haemorrhage [Recovered/Resolved]
  - Acidosis [Unknown]
  - Drug interaction [Unknown]

NARRATIVE: CASE EVENT DATE: 20190131
